FAERS Safety Report 10905551 (Version 1)
Quarter: 2015Q1

REPORT INFORMATION
  Report Type: Spontaneous
  Country: US (occurrence: None)
  Receive Date: 20150309
  Receipt Date: 20150309
  Transmission Date: 20150721
  Serious: Yes (Life-Threatening, Hospitalization, Disabling, Other)
  Sender: FDA-Public Use
  Company Number: None

PATIENT
  Age: 38 Year
  Sex: Female
  Weight: 65.32 kg

DRUGS (1)
  1. MIRENA [Suspect]
     Active Substance: LEVONORGESTREL

REACTIONS (6)
  - Placenta praevia [None]
  - Bladder operation [None]
  - Medical device complication [None]
  - Subchorionic haemorrhage [None]
  - Hysterectomy [None]
  - Placenta accreta [None]

NARRATIVE: CASE EVENT DATE: 20121114
